FAERS Safety Report 7743169-3 (Version None)
Quarter: 2011Q3

REPORT INFORMATION
  Report Type: 
  Country: None (occurrence: None)
  Receive Date: 20110912
  Receipt Date: 20110901
  Transmission Date: 20111222
  Serious: Yes (Hospitalization)
  Sender: FDA-Public Use
  Company Number: JP-ROCHE-801251

PATIENT
  Sex: Female

DRUGS (4)
  1. VOLTAREN [Concomitant]
     Dosage: DOSE FORM: PERORAL AGENT.
     Route: 048
  2. PREDNISOLONE [Concomitant]
     Dosage: DOSE FORM: PERORAL AGENT
     Route: 048
     Dates: start: 20100101, end: 20100101
  3. TOCILIZUMAB [Suspect]
     Indication: RHEUMATOID ARTHRITIS
     Route: 041
     Dates: start: 20090725, end: 20100807
  4. MUCOSTA [Concomitant]
     Dosage: DOSE FORM: PERORAL AGENT.
     Route: 048

REACTIONS (1)
  - JOINT DISLOCATION [None]
